FAERS Safety Report 25061002 (Version 1)
Quarter: 2025Q1

REPORT INFORMATION
  Report Type: Spontaneous
  Country: US (occurrence: US)
  Receive Date: 20250310
  Receipt Date: 20250310
  Transmission Date: 20250409
  Serious: Yes (Other)
  Sender: Hindustan Unilever
  Company Number: US-Hindustan Unilever Limited-2172592

PATIENT
  Age: 31 Year
  Sex: Female

DRUGS (1)
  1. COSMETICS [Suspect]
     Active Substance: COSMETICS

REACTIONS (5)
  - Rash [Recovered/Resolved]
  - Bacterial vaginosis [Not Recovered/Not Resolved]
  - Vulvovaginal discomfort [Not Recovered/Not Resolved]
  - Vaginal discharge [Not Recovered/Not Resolved]
  - Infection [Recovered/Resolved]

NARRATIVE: CASE EVENT DATE: 20250215
